FAERS Safety Report 5978917-6 (Version None)
Quarter: 2008Q4

REPORT INFORMATION
  Report Type: 
  Country: None (occurrence: None)
  Receive Date: 20081204
  Receipt Date: 20081201
  Transmission Date: 20090506
  Serious: Yes (Death, Hospitalization)
  Sender: FDA-Public Use
  Company Number: PHHO2006BR12150

PATIENT
  Sex: Female

DRUGS (1)
  1. TASIGNA [Suspect]
     Indication: CHRONIC MYELOID LEUKAEMIA
     Dosage: 800 MG, QD
     Route: 048
     Dates: start: 20060507

REACTIONS (16)
  - ACUTE MEGAKARYOCYTIC LEUKAEMIA [None]
  - ARTERIOSCLEROSIS CORONARY ARTERY [None]
  - CARDIAC ARREST [None]
  - CEREBROVASCULAR ACCIDENT [None]
  - CHEST PAIN [None]
  - CHRONIC MYELOID LEUKAEMIA [None]
  - CYANOSIS [None]
  - DYSPNOEA [None]
  - HYPERPLASIA [None]
  - HYPERTENSION [None]
  - MYOCARDIAL INFARCTION [None]
  - MYOCARDIAL ISCHAEMIA [None]
  - PLASMA CELLS INCREASED [None]
  - SOPOR [None]
  - SUDDEN DEATH [None]
  - THROMBOCYTHAEMIA [None]
